FAERS Safety Report 4327495-6 (Version None)
Quarter: 2004Q1

REPORT INFORMATION
  Report Type: 
  Country: None (occurrence: None)
  Receive Date: 20040325
  Receipt Date: 20040310
  Transmission Date: 20041129
  Serious: Yes (Hospitalization)
  Sender: FDA-Public Use
  Company Number: 2004AP01558

PATIENT
  Age: 74 Year
  Sex: Female

DRUGS (4)
  1. ARIMIDEX [Suspect]
     Indication: BREAST CANCER RECURRENT
     Dosage: 1 MG DAILY PO
     Route: 048
     Dates: start: 20020621, end: 20021008
  2. TAXOL [Suspect]
     Indication: BREAST CANCER RECURRENT
     Dosage: 60 MG
     Dates: start: 20020712, end: 20020830
  3. BISPHONAL [Suspect]
     Indication: BREAST CANCER RECURRENT
     Dosage: 10 MG
     Dates: start: 20020705, end: 20021001
  4. RADIATION THERAPY [Concomitant]

REACTIONS (3)
  - LOSS OF CONSCIOUSNESS [None]
  - METASTASES TO BONE [None]
  - METASTASES TO SPINE [None]
